FAERS Safety Report 14928946 (Version 1)
Quarter: 2018Q2

REPORT INFORMATION
  Report Type: Spontaneous
  Country: US (occurrence: US)
  Receive Date: 20180504
  Receipt Date: 20180504
  Transmission Date: 20180711
  Serious: Yes (Life-Threatening, Hospitalization)
  Sender: FDA-Public Use
  Company Number: None

PATIENT
  Age: 61 Year
  Sex: Male
  Weight: 101.15 kg

DRUGS (1)
  1. TRULICITY [Suspect]
     Active Substance: DULAGLUTIDE
     Indication: TYPE 2 DIABETES MELLITUS
     Route: 030
     Dates: start: 20171109, end: 20171229

REACTIONS (4)
  - Haemodialysis [None]
  - Acute kidney injury [None]
  - Respiratory distress [None]
  - Lactic acidosis [None]

NARRATIVE: CASE EVENT DATE: 20171229
